FAERS Safety Report 7146074-9 (Version None)
Quarter: 2010Q4

REPORT INFORMATION
  Report Type: 
  Country: None (occurrence: None)
  Receive Date: 20101123
  Receipt Date: 20101115
  Transmission Date: 20110411
  Serious: Yes (Life-Threatening)
  Sender: FDA-Public Use
  Company Number: 108869

PATIENT
  Age: 72 Year
  Sex: Male

DRUGS (1)
  1. ADRIAMYCIN PFS [Suspect]
     Indication: LYMPHOMA

REACTIONS (3)
  - NODULAR REGENERATIVE HYPERPLASIA [None]
  - PORTAL HYPERTENSION [None]
  - VARICES OESOPHAGEAL [None]
